FAERS Safety Report 4847627-0 (Version None)
Quarter: 2005Q4

REPORT INFORMATION
  Report Type: 
  Country: None (occurrence: None)
  Receive Date: 20051205
  Receipt Date: 20051122
  Transmission Date: 20060501
  Serious: Yes (Hospitalization, Other)
  Sender: FDA-Public Use
  Company Number: 2005158600

PATIENT
  Age: 52 Year
  Sex: Female
  Weight: 55 kg

DRUGS (2)
  1. NEURONTIN [Suspect]
     Indication: NEURALGIA
     Dosage: (300 MG, EVERY OTHER DAY), ORAL
     Route: 048
     Dates: start: 20011201, end: 20051015
  2. NEURONTIN [Suspect]
     Indication: PAIN
     Dosage: (300 MG, EVERY OTHER DAY), ORAL
     Route: 048
     Dates: start: 20011201, end: 20051015

REACTIONS (10)
  - CONVULSION [None]
  - EPILEPSY [None]
  - FALL [None]
  - HEAD INJURY [None]
  - HEADACHE [None]
  - LOSS OF CONSCIOUSNESS [None]
  - MALAISE [None]
  - VERTIGO [None]
  - VOMITING [None]
  - WOUND [None]
